FAERS Safety Report 6895066-3 (Version None)
Quarter: 2010Q3

REPORT INFORMATION
  Report Type: 
  Country: None (occurrence: None)
  Receive Date: 20100802
  Receipt Date: 20100726
  Transmission Date: 20110219
  Serious: Yes (Death)
  Sender: FDA-Public Use
  Company Number: GB-CELGENEUS-167-21880-10072401

PATIENT
  Age: 66 Year
  Sex: Female

DRUGS (4)
  1. REVLIMID [Suspect]
     Route: 048
     Dates: start: 20100508, end: 20100702
  2. DAUNORUBICIN HCL [Suspect]
     Route: 051
     Dates: start: 20100623, end: 20100627
  3. ETOPOSIDE [Suspect]
     Route: 051
     Dates: start: 20100623, end: 20100627
  4. CYTARABINE [Suspect]
     Route: 051
     Dates: start: 20100623, end: 20100703

REACTIONS (1)
  - NEUTROPENIC SEPSIS [None]
